FAERS Safety Report 4376616-8 (Version None)
Quarter: 2004Q2

REPORT INFORMATION
  Report Type: 
  Country: None (occurrence: None)
  Receive Date: 20040608
  Receipt Date: 20040525
  Transmission Date: 20050107
  Serious: Yes (Death, Hospitalization)
  Sender: FDA-Public Use
  Company Number: 197252

PATIENT
  Age: 50 Year
  Sex: Female
  Weight: 53.5244 kg

DRUGS (6)
  1. AVONEX [Suspect]
     Indication: MULTIPLE SCLEROSIS
     Dosage: 30 MCG QW IM
     Route: 030
     Dates: start: 20030401, end: 20030101
  2. AVONEX [Suspect]
     Indication: MULTIPLE SCLEROSIS
     Dosage: 30 MCG QW IM
     Route: 030
     Dates: start: 20030101, end: 20040331
  3. DITROPAN [Concomitant]
  4. PROZAC [Concomitant]
  5. EXELON [Concomitant]
  6. ASPIRIN [Concomitant]

REACTIONS (1)
  - CEREBRAL HAEMORRHAGE [None]
